FAERS Safety Report 16162267 (Version 9)
Quarter: 2020Q2

REPORT INFORMATION
  Report Type: Report from Study
  Country: CL (occurrence: CL)
  Receive Date: 20190405
  Receipt Date: 20200618
  Transmission Date: 20200713
  Serious: Yes (Hospitalization, Other)
  Sender: FDA-Public Use
  Company Number: CL-SA-2017SA245621

PATIENT

DRUGS (2)
  1. ACICLOVIR [Concomitant]
     Active Substance: ACYCLOVIR
     Indication: PROPHYLAXIS
     Dosage: UNK UNK,QD
     Route: 048
     Dates: start: 20171127
  2. ALEMTUZUMAB [Suspect]
     Active Substance: ALEMTUZUMAB
     Indication: RELAPSING-REMITTING MULTIPLE SCLEROSIS
     Dosage: 12 MG,QD
     Route: 041
     Dates: start: 20171127, end: 20171129

REACTIONS (27)
  - Gait disturbance [Recovering/Resolving]
  - Haematocrit decreased [Not Recovered/Not Resolved]
  - Platelet count decreased [Not Recovered/Not Resolved]
  - Tachycardia [Unknown]
  - Mean cell haemoglobin increased [Not Recovered/Not Resolved]
  - Myelitis transverse [Recovering/Resolving]
  - Bursitis infective [Recovered/Resolved]
  - Diarrhoea [Recovered/Resolved]
  - Haemoglobin decreased [Not Recovered/Not Resolved]
  - Condition aggravated [Recovering/Resolving]
  - Hyperthyroidism [Unknown]
  - Rash [Recovered/Resolved]
  - Thyroid stimulating immunoglobulin [Not Recovered/Not Resolved]
  - Hypertension [Recovered/Resolved]
  - Fatigue [Recovering/Resolving]
  - Blood thyroid stimulating hormone increased [Not Recovered/Not Resolved]
  - Muscle fatigue [Recovered/Resolved]
  - Nasopharyngitis [Recovered/Resolved]
  - Red blood cell count decreased [Not Recovered/Not Resolved]
  - Autoimmune haemolytic anaemia [Recovering/Resolving]
  - Odynophagia [Recovered/Resolved]
  - Prostatitis [Recovered/Resolved]
  - Blood creatinine increased [Not Recovered/Not Resolved]
  - Thyroid function test abnormal [Recovering/Resolving]
  - Anti-thyroid antibody positive [Not Recovered/Not Resolved]
  - Pain [Recovered/Resolved]
  - White blood cell count decreased [Unknown]

NARRATIVE: CASE EVENT DATE: 20171127
